FAERS Safety Report 6904233-1 (Version None)
Quarter: 2010Q3

REPORT INFORMATION
  Report Type: 
  Country: None (occurrence: None)
  Receive Date: 20100804
  Receipt Date: 20090330
  Transmission Date: 20110219
  Serious: No
  Sender: FDA-Public Use
  Company Number: US-PFIZER INC-2009191179

PATIENT

DRUGS (2)
  1. LYRICA [Suspect]
     Dosage: UNK
  2. PONSTEL [Suspect]
     Indication: NEURALGIA
     Dosage: UNK

REACTIONS (3)
  - DRUG INEFFECTIVE [None]
  - OEDEMA PERIPHERAL [None]
  - SOMNOLENCE [None]
